FAERS Safety Report 19466081 (Version 2)
Quarter: 2021Q3

REPORT INFORMATION
  Report Type: Report from Study
  Country: None (occurrence: KW)
  Receive Date: 20210624
  Receipt Date: 20210714
  Transmission Date: 20211014
  Serious: Yes (Death, Hospitalization)
  Sender: FDA-Public Use
  Company Number: KW-ABBVIE-21K-091-3962187-00

PATIENT
  Sex: Male

DRUGS (8)
  1. LEVACIN [Concomitant]
     Indication: PARKINSON^S DISEASE
     Dosage: 200/50MG ONCE A DAY AT NIGHT SYRUP
     Route: 050
  2. KULAX [Concomitant]
     Indication: LAXATIVE SUPPORTIVE CARE
  3. DUODOPA [Suspect]
     Active Substance: CARBIDOPA\LEVODOPA
     Indication: PARKINSON^S DISEASE
     Dosage: NO CASSETTES AVAILABLE
     Route: 050
     Dates: start: 20210308, end: 20210617
  4. SINEMET [Concomitant]
     Active Substance: CARBIDOPA\LEVODOPA
     Indication: PARKINSON^S DISEASE
     Dosage: 25/100MG AT NIGHT
     Route: 050
  5. EXELON PATCH [Concomitant]
     Active Substance: RIVASTIGMINE
     Indication: PARKINSON^S DISEASE
     Route: 062
  6. MELATONIN [Concomitant]
     Active Substance: MELATONIN
     Indication: SLEEP DISORDER THERAPY
     Dosage: PILLS AT NIGHT
     Route: 050
  7. DUODOPA [Suspect]
     Active Substance: CARBIDOPA\LEVODOPA
  8. EZIPECT [Concomitant]
     Indication: BRONCHIAL SECRETION RETENTION

REACTIONS (19)
  - Respiratory tract infection [Fatal]
  - Blood uric acid decreased [Unknown]
  - Blood cholesterol increased [Unknown]
  - Oxygen saturation decreased [Fatal]
  - Blood potassium decreased [Unknown]
  - Blood sodium increased [Recovered/Resolved]
  - Blood chloride increased [Unknown]
  - Blood calcium increased [Unknown]
  - Blood urea increased [Unknown]
  - Red blood cell count decreased [Unknown]
  - Blood magnesium increased [Unknown]
  - Blood triglycerides increased [Unknown]
  - Decreased activity [Recovered/Resolved]
  - Haemoglobin decreased [Unknown]
  - High density lipoprotein decreased [Unknown]
  - Aspartate aminotransferase increased [Unknown]
  - Blood albumin decreased [Unknown]
  - Activated partial thromboplastin time abnormal [Unknown]
  - Haematocrit decreased [Unknown]

NARRATIVE: CASE EVENT DATE: 20210617
